FAERS Safety Report 17147471 (Version 3)
Quarter: 2020Q1

REPORT INFORMATION
  Report Type: Spontaneous
  Country: US (occurrence: US)
  Receive Date: 20191212
  Receipt Date: 20200220
  Transmission Date: 20200409
  Serious: No
  Sender: FDA-Public Use
  Company Number: US-PFIZER INC-2019535505

PATIENT
  Age: 81 Year
  Sex: Female
  Weight: 102 kg

DRUGS (20)
  1. CYMBALTA [Concomitant]
     Active Substance: DULOXETINE HYDROCHLORIDE
     Dosage: 20 MG, UNK
     Dates: start: 2019
  2. SYNTHROID [Concomitant]
     Active Substance: LEVOTHYROXINE SODIUM
     Dosage: 75 UG, UNK
     Dates: start: 1971
  3. TYLENOL [Concomitant]
     Active Substance: ACETAMINOPHEN
     Dosage: 325 MG, AS NEEDED
  4. ASPIR LOW [Concomitant]
     Active Substance: ASPIRIN
     Dosage: 81 MG, UNK
  5. IBRANCE [Suspect]
     Active Substance: PALBOCICLIB
     Dosage: 125 MG, CYCLIC (DAILY FOR 21 DAYS THEN7 DAYS OFF)
     Route: 048
     Dates: start: 20191003, end: 20200211
  6. IBRANCE [Suspect]
     Active Substance: PALBOCICLIB
     Indication: BREAST CANCER METASTATIC
     Dosage: 125 MG, 1X/DAY (OD-ONCE A DAY)
     Route: 048
  7. ASPIRIN (E.C.) [Concomitant]
     Active Substance: ASPIRIN
     Dosage: 325 MG, UNK
     Dates: start: 2011
  8. CALCIUM CARBONATE. [Concomitant]
     Active Substance: CALCIUM CARBONATE
     Dosage: UNK(500(1250) TABLET)
     Dates: start: 2010
  9. VITAMIN B12 [Concomitant]
     Active Substance: CYANOCOBALAMIN
     Dosage: 2500 UG, UNK
     Dates: start: 2011
  10. IBRANCE [Suspect]
     Active Substance: PALBOCICLIB
     Indication: BREAST CANCER FEMALE
     Dosage: 125 MG, CYCLIC (DAILY FOR 21 DAYS THEN7 DAYS OFF)
     Route: 048
     Dates: start: 20191003, end: 20200211
  11. ASPIRIN (E.C.) [Concomitant]
     Active Substance: ASPIRIN
     Dosage: 162 MG, 1X/DAY
  12. POTASSIUM GLUCONATE [Concomitant]
     Active Substance: POTASSIUM GLUCONATE
     Dosage: UNK
     Dates: start: 2011
  13. NOVASCAN [Concomitant]
     Dosage: 5 MG, UNK
     Dates: start: 2011
  14. ENALAPRIL MALEAT [Concomitant]
     Active Substance: ENALAPRIL MALEATE
     Dosage: UNK
     Dates: start: 2011
  15. FERROUS SULFATE. [Concomitant]
     Active Substance: FERROUS SULFATE
     Dosage: UNK(325(65) MG TABLET)
     Dates: start: 2011
  16. IMODIUM [Concomitant]
     Active Substance: LOPERAMIDE HYDROCHLORIDE
     Dosage: UNK, AS NEEDED
  17. LASIX [Concomitant]
     Active Substance: FUROSEMIDE
     Dosage: 40 MG, UNK
     Dates: start: 2011
  18. OMEGA-3 [SALMO SALAR OIL] [Concomitant]
     Active Substance: ATLANTIC SALMON OIL
     Dosage: 1000 MG, UNK
     Dates: start: 2011
  19. AMLODIPINE BESYLATE. [Concomitant]
     Active Substance: AMLODIPINE BESYLATE
     Dosage: UNK
     Dates: start: 2011
  20. FASLODEX [Concomitant]
     Active Substance: FULVESTRANT
     Dosage: 500 MG, UNK
     Route: 030

REACTIONS (6)
  - White blood cell count decreased [Unknown]
  - Dry skin [Not Recovered/Not Resolved]
  - Blister [Unknown]
  - Rash [Unknown]
  - Pruritus [Not Recovered/Not Resolved]
  - Body tinea [Not Recovered/Not Resolved]

NARRATIVE: CASE EVENT DATE: 201908
